FAERS Safety Report 26148241 (Version 1)
Quarter: 2025Q4

REPORT INFORMATION
  Report Type: Spontaneous
  Country: US (occurrence: US)
  Receive Date: 20251212
  Receipt Date: 20251212
  Transmission Date: 20260118
  Serious: No
  Sender: JOHNSON AND JOHNSON
  Company Number: US-JNJFOC-20251212901

PATIENT
  Sex: Male

DRUGS (1)
  1. TREMFYA [Suspect]
     Active Substance: GUSELKUMAB
     Indication: Product used for unknown indication
     Dosage: STRENGTH: 200.00 MG / 2.00 ML

REACTIONS (4)
  - Wound [Unknown]
  - Abdominal injury [Unknown]
  - Incorrect disposal of product [Unknown]
  - Device issue [Unknown]
